FAERS Safety Report 26173709 (Version 1)
Quarter: 2025Q4

REPORT INFORMATION
  Report Type: Spontaneous
  Country: US (occurrence: US)
  Receive Date: 20251218
  Receipt Date: 20251218
  Transmission Date: 20260118
  Serious: Yes (Hospitalization)
  Sender: HISAMITSU PHARMACEUTICAL CO., INC.
  Company Number: US-HISAMITSU PHARMACEUTICAL CO., INC.-2025-NOV-US002110

PATIENT
  Age: 39 Year
  Sex: Female

DRUGS (1)
  1. ASENAPINE [Suspect]
     Active Substance: ASENAPINE
     Indication: Product used for unknown indication
     Dosage: UNK, UNKNOWN
     Route: 062

REACTIONS (1)
  - Drug-induced liver injury [Recovering/Resolving]
